FAERS Safety Report 6672400-0 (Version None)
Quarter: 2010Q2

REPORT INFORMATION
  Report Type: 
  Country: None (occurrence: None)
  Receive Date: 20100408
  Receipt Date: 20100324
  Transmission Date: 20101027
  Serious: Yes (Hospitalization, Other)
  Sender: FDA-Public Use
  Company Number: US-ELI_LILLY_AND_COMPANY-US201004000212

PATIENT
  Sex: Female

DRUGS (19)
  1. FORTEO [Suspect]
     Indication: OSTEOPOROSIS
     Dosage: 20 UG, DAILY (1/D)
     Dates: start: 20080601
  2. ALLOPURINOL [Concomitant]
  3. LOTREL [Concomitant]
  4. ATENOLOL [Concomitant]
  5. ASPIRIN [Concomitant]
  6. SENTIAL [Concomitant]
  7. FOLIC ACID [Concomitant]
  8. PLAQUENIL [Concomitant]
  9. IRON [Concomitant]
  10. LEVOTHYROXINE SODIUM [Concomitant]
  11. PREDNISONE [Concomitant]
  12. COUMADIN [Concomitant]
  13. ZOCOR [Concomitant]
  14. VITAMIN C [Concomitant]
  15. CALCIUM [Concomitant]
  16. VITAMIN D [Concomitant]
  17. VITAMIN B COMPLEX CAP [Concomitant]
  18. VITAMIN E [Concomitant]
  19. LUTEIN [Concomitant]

REACTIONS (4)
  - CHEST PAIN [None]
  - PNEUMONIA [None]
  - RENAL IMPAIRMENT [None]
  - SWELLING [None]
